FAERS Safety Report 5722423-0 (Version None)
Quarter: 2008Q2

REPORT INFORMATION
  Report Type: 
  Country: None (occurrence: None)
  Receive Date: 20080429
  Receipt Date: 20070925
  Transmission Date: 20081010
  Serious: No
  Sender: FDA-Public Use
  Company Number: US-ASTRAZENECA-2007UW19521

PATIENT
  Sex: Female

DRUGS (2)
  1. NEXIUM [Suspect]
     Indication: DYSPEPSIA
     Route: 048
     Dates: start: 20070726
  2. LOTREL [Concomitant]

REACTIONS (3)
  - ILL-DEFINED DISORDER [None]
  - LIP SWELLING [None]
  - PHARYNGEAL OEDEMA [None]
